FAERS Safety Report 25311908 (Version 3)
Quarter: 2025Q2

REPORT INFORMATION
  Report Type: Spontaneous
  Country: ES (occurrence: ES)
  Receive Date: 20250514
  Receipt Date: 20250624
  Transmission Date: 20250716
  Serious: Yes (Life-Threatening, Hospitalization, Other)
  Sender: AUROBINDO
  Company Number: ES-AEMPS-1667838

PATIENT
  Age: 30 Year
  Sex: Female

DRUGS (8)
  1. ATENOLOL [Interacting]
     Active Substance: ATENOLOL
     Indication: Suicide attempt
     Dosage: UNK UNK, ONCE A DAY
     Route: 048
     Dates: start: 20250117, end: 20250117
  2. ATENOLOL [Interacting]
     Active Substance: ATENOLOL
     Indication: Suicidal ideation
  3. HYDROCHLOROTHIAZIDE\OLMESARTAN MEDOXOMIL [Interacting]
     Active Substance: HYDROCHLOROTHIAZIDE\OLMESARTAN MEDOXOMIL
     Indication: Product used for unknown indication
     Route: 048
     Dates: start: 20250117, end: 20250117
  4. HYDROCHLOROTHIAZIDE\OLMESARTAN MEDOXOMIL [Interacting]
     Active Substance: HYDROCHLOROTHIAZIDE\OLMESARTAN MEDOXOMIL
     Indication: Suicide attempt
  5. QUETIAPINE FUMARATE [Interacting]
     Active Substance: QUETIAPINE FUMARATE
     Indication: Suicide attempt
     Dosage: UNK UNK, ONCE A DAY
     Route: 048
     Dates: start: 20250117, end: 20250117
  6. CLOMIPRAMINE [Interacting]
     Active Substance: CLOMIPRAMINE
     Indication: Suicidal ideation
     Route: 048
     Dates: start: 20250117, end: 20250117
  7. OLMESARTAN [Concomitant]
     Active Substance: OLMESARTAN
     Indication: Product used for unknown indication
     Route: 065
  8. CLOMIPRAMINE [Concomitant]
     Active Substance: CLOMIPRAMINE
     Indication: Product used for unknown indication
     Route: 065

REACTIONS (11)
  - Suicide attempt [Unknown]
  - Acute kidney injury [Recovered/Resolved]
  - Cardio-respiratory arrest [Recovered/Resolved]
  - Intentional overdose [Unknown]
  - Shock [Recovered/Resolved]
  - Pancreatitis acute [Recovered/Resolved]
  - Hepatic failure [Unknown]
  - Systemic inflammatory response syndrome [Recovering/Resolving]
  - Acute respiratory distress syndrome [Recovering/Resolving]
  - Clostridium difficile colitis [Recovered/Resolved]
  - Tachycardia [Unknown]

NARRATIVE: CASE EVENT DATE: 20250101
